FAERS Safety Report 9921804 (Version 4)
Quarter: 2014Q3

REPORT INFORMATION
  Report Type: Report from Study
  Country: JP (occurrence: JP)
  Receive Date: 20140225
  Receipt Date: 20140923
  Transmission Date: 20150326
  Serious: Yes (Life-Threatening, Hospitalization, Other)
  Sender: FDA-Public Use
  Company Number: JP-PFIZER INC-2014049635

PATIENT
  Age: 69 Year
  Sex: Female
  Weight: 53.5 kg

DRUGS (13)
  1. LIPITOR [Concomitant]
     Active Substance: ATORVASTATIN CALCIUM
     Dosage: 10 MG, 1X/DAY
     Route: 048
     Dates: end: 20130906
  2. ALESION [Concomitant]
     Active Substance: EPINASTINE HYDROCHLORIDE
     Dosage: 20 MG, 1X/DAY
     Route: 048
  3. ASTOMIN [Concomitant]
     Active Substance: DIMEMORFAN
     Dosage: 20 MG, AS NEEDED
     Route: 048
     Dates: start: 20130806
  4. PRIMPERAN [Concomitant]
     Active Substance: METOCLOPRAMIDE HYDROCHLORIDE
     Dosage: 10 MG, AS NEEDED
     Route: 048
     Dates: start: 20130803, end: 20130906
  5. XALKORI [Suspect]
     Active Substance: CRIZOTINIB
     Dosage: 200 MG, 2X/DAY
     Route: 048
     Dates: start: 20130820, end: 20130906
  6. LENDORMIN [Concomitant]
     Active Substance: BROTIZOLAM
     Dosage: 0.25 MG, 1X/DAY
     Route: 048
  7. HEPARIN CALCIUM [Concomitant]
     Active Substance: HEPARIN CALCIUM
     Dosage: 5000 IU, 2X/DAY
     Route: 058
  8. CODEINE PHOSPHATE HYDRATE [Concomitant]
     Active Substance: CODEINE PHOSPHATE
     Dosage: 20 MG, 3X/DAY
     Route: 048
     Dates: start: 20130812
  9. MICARDIS [Concomitant]
     Active Substance: TELMISARTAN
     Dosage: 80 MG, 1X/DAY
     Route: 048
     Dates: end: 20130906
  10. TAKEPRON [Concomitant]
     Active Substance: LANSOPRAZOLE
     Dosage: 15 MG, 1X/DAY
     Route: 048
  11. CEFZON [Concomitant]
     Active Substance: CEFDINIR
     Dosage: 100 MG, 3X/DAY
     Route: 048
     Dates: start: 20130812, end: 20130816
  12. XALKORI [Suspect]
     Active Substance: CRIZOTINIB
     Indication: NON-SMALL CELL LUNG CANCER
     Dosage: 250 MG, 2X/DAY
     Route: 048
     Dates: start: 20130803, end: 20130812
  13. MAGLAX [Concomitant]
     Active Substance: MAGNESIUM OXIDE
     Dosage: 330 MG, AS NEEDED
     Route: 048
     Dates: start: 20130808

REACTIONS (2)
  - Pneumonia [Recovered/Resolved]
  - Renal impairment [Recovered/Resolved]

NARRATIVE: CASE EVENT DATE: 20130812
